FAERS Safety Report 7388929-6 (Version None)
Quarter: 2011Q2

REPORT INFORMATION
  Report Type: 
  Country: None (occurrence: None)
  Receive Date: 20110401
  Receipt Date: 20110328
  Transmission Date: 20111010
  Serious: No
  Sender: FDA-Public Use
  Company Number: US-PFIZER INC-2011069543

PATIENT
  Age: 42 Month
  Sex: Male

DRUGS (1)
  1. ADVIL LIQUI-GELS [Suspect]
     Dosage: 200 MG, UNK
     Route: 048
     Dates: start: 20110328

REACTIONS (3)
  - GLOSSODYNIA [None]
  - OVERDOSE [None]
  - ACCIDENTAL DRUG INTAKE BY CHILD [None]
